FAERS Safety Report 25431711 (Version 2)
Quarter: 2025Q3

REPORT INFORMATION
  Report Type: Spontaneous
  Country: JP (occurrence: JP)
  Receive Date: 20250613
  Receipt Date: 20250704
  Transmission Date: 20251021
  Serious: Yes (Other)
  Sender: JOHNSON AND JOHNSON
  Company Number: JP-JNJFOC-20250614804

PATIENT
  Age: 76 Year
  Sex: Female

DRUGS (6)
  1. SIMPONI [Suspect]
     Active Substance: GOLIMUMAB
     Indication: Rheumatoid arthritis
     Route: 058
  2. METHOTREXATE [Concomitant]
     Active Substance: METHOTREXATE
     Indication: Rheumatoid arthritis
     Route: 065
     Dates: start: 201603
  3. PREDNISOLONE [Concomitant]
     Active Substance: PREDNISOLONE
     Indication: Rheumatoid arthritis
     Route: 065
     Dates: start: 201603
  4. ETANERCEPT(GENETICAL RECOMBINATION) [Concomitant]
     Indication: Rheumatoid arthritis
     Route: 065
  5. ABATACEPT [Concomitant]
     Active Substance: ABATACEPT
     Indication: Rheumatoid arthritis
     Route: 065
  6. CERTOLIZUMAB PEGOL(GENETICAL RECOMBINATION) [Concomitant]
     Indication: Rheumatoid arthritis
     Route: 065

REACTIONS (1)
  - Hepatitis B reactivation [Unknown]

NARRATIVE: CASE EVENT DATE: 20210401
